FAERS Safety Report 11556761 (Version 3)
Quarter: 2015Q4

REPORT INFORMATION
  Report Type: Spontaneous
  Country: FR (occurrence: FR)
  Receive Date: 20150925
  Receipt Date: 20151111
  Transmission Date: 20160304
  Serious: Yes (Hospitalization, Other)
  Sender: FDA-Public Use
  Company Number: FR-BRISTOL-MYERS SQUIBB COMPANY-BMS-2015-063596

PATIENT
  Age: 29 Year
  Sex: Female

DRUGS (2)
  1. ABILIFY [Suspect]
     Active Substance: ARIPIPRAZOLE
     Indication: HYPOMANIA
     Dosage: 10 MG, QD
     Route: 048
     Dates: start: 201505, end: 201505
  2. ABILIFY [Suspect]
     Active Substance: ARIPIPRAZOLE
     Indication: ELEVATED MOOD

REACTIONS (9)
  - Vomiting [Recovered/Resolved]
  - Abasia [Recovered/Resolved]
  - Oral disorder [Recovered/Resolved]
  - Dysstasia [Recovered/Resolved]
  - Eyelid disorder [Recovered/Resolved]
  - Nausea [Recovered/Resolved]
  - Drug ineffective [Unknown]
  - Sedation [Recovered/Resolved]
  - Off label use [Unknown]

NARRATIVE: CASE EVENT DATE: 20150423
